FAERS Safety Report 4432339-8 (Version None)
Quarter: 2004Q3

REPORT INFORMATION
  Report Type: 
  Country: None (occurrence: None)
  Receive Date: 20040825
  Receipt Date: 20040817
  Transmission Date: 20050211
  Serious: Yes (Hospitalization)
  Sender: FDA-Public Use
  Company Number: FR-BRISTOL-MYERS SQUIBB COMPANY-12673414

PATIENT
  Sex: Female

DRUGS (3)
  1. TAXOL [Suspect]
     Indication: OVARIAN CANCER
     Dosage: 175 MG/M2 ON DAY 1
     Route: 050
     Dates: start: 20030825, end: 20030825
  2. PARAPLATIN [Suspect]
     Indication: OVARIAN CANCER
     Dosage: AUC 5 ON DAY 1
     Dates: start: 20030825, end: 20030825
  3. GEMZAR [Suspect]
     Indication: OVARIAN CANCER
     Dosage: 800 MG/M2 ON DAYS 1 AND 8
     Dates: start: 20031013, end: 20031013

REACTIONS (2)
  - PSEUDOMONAL SEPSIS [None]
  - PYREXIA [None]
